FAERS Safety Report 13503555 (Version 1)
Quarter: 2017Q2

REPORT INFORMATION
  Report Type: Spontaneous
  Country: US (occurrence: US)
  Receive Date: 20170502
  Receipt Date: 20170502
  Transmission Date: 20170830
  Serious: Yes (Other)
  Sender: FDA-Public Use
  Company Number: US-PFIZER INC-2017185902

PATIENT
  Sex: Female

DRUGS (1)
  1. XELJANZ XR [Suspect]
     Active Substance: TOFACITINIB CITRATE
     Dosage: 11 MG, UNK

REACTIONS (15)
  - Dry mouth [Unknown]
  - Cough [Unknown]
  - Osteoarthritis [Unknown]
  - Dry eye [Unknown]
  - Back pain [Unknown]
  - Hypoaesthesia [Unknown]
  - Grip strength decreased [Unknown]
  - Fatigue [Unknown]
  - Depression [Unknown]
  - Rheumatoid arthritis [Unknown]
  - Myalgia [Unknown]
  - Paraesthesia [Unknown]
  - Joint range of motion decreased [Unknown]
  - Crepitations [Unknown]
  - Synovitis [Unknown]
